FAERS Safety Report 9002266 (Version 1)
Quarter: 2012Q4

REPORT INFORMATION
  Report Type: Spontaneous
  Country: US (occurrence: None)
  Receive Date: 20120917
  Receipt Date: 20120917
  Transmission Date: 20130627
  Serious: Yes (Hospitalization, Other)
  Sender: FDA-Public Use
  Company Number: 54973 AE1000

PATIENT

DRUGS (1)
  1. HYLANDS BABY COUGH SYRUP [Suspect]
     Indication: COUGH SUPPRESSION

REACTIONS (1)
  - Respiratory distress [None]
